FAERS Safety Report 16715310 (Version 1)
Quarter: 2019Q3

REPORT INFORMATION
  Report Type: Spontaneous
  Country: FR (occurrence: FR)
  Receive Date: 20190819
  Receipt Date: 20190819
  Transmission Date: 20191005
  Serious: Yes (Hospitalization)
  Sender: FDA-Public Use
  Company Number: FR-AMGEN-FRASP2019128489

PATIENT
  Age: 86 Year
  Sex: Male
  Weight: 63 kg

DRUGS (15)
  1. RAMIPRIL. [Concomitant]
     Active Substance: RAMIPRIL
     Indication: HYPERTENSION
     Dosage: 10 MILLIGRAM, QD,1-0-0
     Route: 048
     Dates: start: 2014, end: 20190725
  2. MACROGOL 4000 [Concomitant]
     Active Substance: POLYETHYLENE GLYCOL 4000
     Indication: CONSTIPATION
     Dosage: 1 DOSAGE FORM, QD 1-0-0
     Route: 048
     Dates: start: 20190529
  3. PARACETAMOL [Concomitant]
     Active Substance: ACETAMINOPHEN
     Indication: ANALGESIC INTERVENTION SUPPORTIVE THERAPY
     Dosage: 3 GRAM, QD, 1-1-1
     Route: 048
     Dates: start: 2014
  4. NEBIVOLOL. [Concomitant]
     Active Substance: NEBIVOLOL
     Indication: MYOCARDIAL ISCHAEMIA
     Dosage: 5 MILLIGRAM, QD, 1-0-0
     Route: 048
     Dates: start: 2014
  5. CLOPIDOGREL [Concomitant]
     Active Substance: CLOPIDOGREL BISULFATE
     Indication: MYOCARDIAL ISCHAEMIA
     Dosage: 75 MILLIGRAM, QD, 1-0-0
     Route: 048
     Dates: start: 2014, end: 20190705
  6. MOMETASONE [Concomitant]
     Active Substance: MOMETASONE
     Indication: RHINITIS
     Dosage: 100 MICROGRAM, QD, 2-0-0
     Route: 055
     Dates: start: 2016
  7. KANJINTI [Suspect]
     Active Substance: TRASTUZUMAB-ANNS
     Indication: GASTRIC CANCER
     Dosage: 378 MILLIGRAM, CYCLICAL
     Route: 042
     Dates: start: 20190704
  8. MOLSIDOMINE [Concomitant]
     Active Substance: MOLSIDOMINE
     Indication: MYOCARDIAL ISCHAEMIA
     Dosage: 6 MILLIGRAM, QD,1-1-1
     Route: 048
     Dates: start: 2014, end: 20190705
  9. EZETROL [Concomitant]
     Active Substance: EZETIMIBE
     Indication: MYOCARDIAL ISCHAEMIA
     Dosage: 10 MILLIGRAM, QD, 0-0-1
     Route: 048
     Dates: start: 2014
  10. AVODART [Concomitant]
     Active Substance: DUTASTERIDE
     Indication: DYSURIA
     Dosage: 0.5 MILLIGRAM, QD,0-1-0
     Route: 048
     Dates: start: 2015
  11. METHYLPREDNISOLONE. [Suspect]
     Active Substance: METHYLPREDNISOLONE
     Indication: PREMEDICATION
     Dosage: 60 MILLIGRAM, CYCLICAL
     Route: 042
     Dates: start: 20190704, end: 20190704
  12. ATORVASTATINE [ATORVASTATIN CALCIUM] [Concomitant]
     Indication: MYOCARDIAL ISCHAEMIA
     Dosage: 80 MILLIGRAM, QD,0-0-1
     Route: 048
     Dates: start: 2014
  13. TARDYFERON [Concomitant]
     Active Substance: FERROUS SULFATE
     Indication: CONSTIPATION
     Dosage: 160 MILLIGRAM, QD,1-0-1
     Route: 048
     Dates: start: 20190605
  14. TRAMADOL. [Concomitant]
     Active Substance: TRAMADOL
     Indication: ANALGESIC INTERVENTION SUPPORTIVE THERAPY
     Dosage: 200 MILLIGRAM, QD,1-0-1
     Route: 048
     Dates: start: 20190611
  15. SPASFON LYOC [Concomitant]
     Active Substance: PHLOROGLUCINOL
     Indication: MUSCLE SPASMS
     Dosage: 80 MILLIGRAM, AS NECESSARY
     Route: 048
     Dates: start: 20190529

REACTIONS (2)
  - Hypersensitivity [Recovered/Resolved]
  - Kounis syndrome [Recovered/Resolved with Sequelae]

NARRATIVE: CASE EVENT DATE: 20190704
